FAERS Safety Report 7872689-6 (Version None)
Quarter: 2011Q4

REPORT INFORMATION
  Report Type: 
  Country: None (occurrence: None)
  Receive Date: 20111030
  Receipt Date: 20110503
  Transmission Date: 20120403
  Serious: No
  Sender: FDA-Public Use
  Company Number: US-AMGEN-USASP2011022834

PATIENT
  Age: 22 Year
  Sex: Female
  Weight: 61.224 kg

DRUGS (4)
  1. ONE DAILY                          /01824901/ [Concomitant]
     Route: 048
  2. NABUMETONE [Concomitant]
     Dosage: 500 MG, UNK
     Route: 048
  3. ENBREL [Suspect]
     Indication: PRODUCT USED FOR UNKNOWN INDICATION
     Dosage: 50 MG, QWK
  4. FOLIC ACID [Concomitant]
     Dosage: 1 MG, UNK
     Route: 048

REACTIONS (4)
  - BLISTER [None]
  - URINARY TRACT INFECTION [None]
  - LOCALISED INFECTION [None]
  - LYMPHADENOPATHY [None]
